FAERS Safety Report 7623114-1 (Version None)
Quarter: 2011Q3

REPORT INFORMATION
  Report Type: 
  Country: None (occurrence: None)
  Receive Date: 20110719
  Receipt Date: 20110719
  Transmission Date: 20111222
  Serious: Yes (Hospitalization)
  Sender: FDA-Public Use
  Company Number: None

PATIENT
  Age: 70 Year
  Sex: Male

DRUGS (1)
  1. SUNITINIB MALATE [Suspect]
     Indication: METASTATIC RENAL CELL CARCINOMA
     Dosage: 50 MG Q DAY PO
     Route: 048
     Dates: start: 20110523

REACTIONS (5)
  - NAUSEA [None]
  - VOMITING [None]
  - BLOOD SODIUM DECREASED [None]
  - ASTHENIA [None]
  - HYPOPHAGIA [None]
